FAERS Safety Report 20450655 (Version 2)
Quarter: 2022Q2

REPORT INFORMATION
  Report Type: Spontaneous
  Country: US (occurrence: US)
  Receive Date: 20220209
  Receipt Date: 20220621
  Transmission Date: 20220721
  Serious: No
  Sender: FDA-Public Use
  Company Number: US-BAYER-2022A020607

PATIENT
  Age: 73 Year
  Sex: Female

DRUGS (2)
  1. MIRALAX [Suspect]
     Active Substance: POLYETHYLENE GLYCOL 3350
     Indication: Constipation
     Dosage: UNK, BID
     Route: 048
     Dates: start: 20220108
  2. MIRALAX [Suspect]
     Active Substance: POLYETHYLENE GLYCOL 3350
     Indication: Gastrointestinal disorder
     Dosage: UNK, ONCE A DAY, 17G OF POWDER. DOSE
     Route: 048
     Dates: start: 202204, end: 20220601

REACTIONS (3)
  - Inappropriate schedule of product administration [None]
  - Incorrect product administration duration [None]
  - Drug ineffective [Unknown]

NARRATIVE: CASE EVENT DATE: 20220108
